FAERS Safety Report 10279471 (Version 4)
Quarter: 2014Q3

REPORT INFORMATION
  Report Type: Spontaneous
  Country: CA (occurrence: CA)
  Receive Date: 20140707
  Receipt Date: 20140806
  Transmission Date: 20150326
  Serious: Yes (Hospitalization, Other)
  Sender: FDA-Public Use
  Company Number: CA-AMGEN-CANSP2013048355

PATIENT
  Age: 58 Year
  Sex: Female
  Weight: 82.99 kg

DRUGS (4)
  1. PROLIA [Suspect]
     Active Substance: DENOSUMAB
     Indication: OSTEOPOROSIS POSTMENOPAUSAL
     Dosage: 60 MG/ML, Q6MO
     Route: 065
     Dates: start: 20110722
  2. RIVA AMLODIPINE [Concomitant]
     Dosage: 5 MG, UNK
  3. ATORVASTATIN [Concomitant]
     Active Substance: ATORVASTATIN
     Dosage: 20 MG, UNK
  4. SANDOZ TELMISARTAN [Concomitant]
     Dosage: 40 MG, UNK

REACTIONS (7)
  - HER-2 positive breast cancer [Not Recovered/Not Resolved]
  - Wrist fracture [Recovered/Resolved]
  - Ulna fracture [Not Recovered/Not Resolved]
  - Fall [Unknown]
  - Upper limb fracture [Recovered/Resolved]
  - Diarrhoea [Not Recovered/Not Resolved]
  - Vitamin D decreased [Unknown]

NARRATIVE: CASE EVENT DATE: 20130215
